FAERS Safety Report 6697640-6 (Version None)
Quarter: 2010Q2

REPORT INFORMATION
  Report Type: 
  Country: None (occurrence: None)
  Receive Date: 20100423
  Receipt Date: 20100408
  Transmission Date: 20101027
  Serious: Yes (Life-Threatening, Hospitalization)
  Sender: FDA-Public Use
  Company Number: AMAG201000187

PATIENT
  Age: 86 Year
  Sex: Male
  Weight: 95.2 kg

DRUGS (16)
  1. FERAHEME [Suspect]
     Indication: IRON DEFICIENCY ANAEMIA
     Dosage: 510MG, SINGLE, INTRAVENOUS
     Route: 042
     Dates: start: 20100326, end: 20100326
  2. LASIX [Concomitant]
  3. LISINOPRIL (LISINOPRIL DIHYDRATE) [Concomitant]
  4. AMITRIOTYLINE (AMITRIPTYLINE HYDROCHLORIDE) [Concomitant]
  5. FLOMAX (MORNIFLUMATE) [Concomitant]
  6. GLIPIZIDE [Concomitant]
  7. LOPRESSOR [Concomitant]
  8. ZOCOR [Concomitant]
  9. LEVOTHYROXINE SODIUM [Concomitant]
  10. COUMADIN [Concomitant]
  11. ISOSORBIDE (ISOSORBIDE DINITRATE) [Concomitant]
  12. TERAZOSIN HCL [Concomitant]
  13. CALCITRIOL [Concomitant]
  14. IRON (IRON) [Concomitant]
  15. POTASSIUM (POTASSIUM BICARBONATE, POTASSIUM CHLORIDE) [Concomitant]
  16. ARANSEP (DARBEPOETIN ALFA) [Concomitant]

REACTIONS (4)
  - CARDIAC ARREST [None]
  - CARDIAC FAILURE CONGESTIVE [None]
  - IMMEDIATE POST-INJECTION REACTION [None]
  - PULSE ABSENT [None]
